FAERS Safety Report 8519731 (Version 2)
Quarter: 2012Q4

REPORT INFORMATION
  Report Type: 
  Country: US (occurrence: US)
  Receive Date: 20120418
  Receipt Date: 20121120
  Transmission Date: 20130627
  Serious: No
  Sender: FDA-Public Use
  Company Number: US-ASTRAZENECA-2011SE36190

PATIENT
  Age: 38 Year
  Sex: Female

DRUGS (1)
  1. NEXIUM [Suspect]
     Route: 048

REACTIONS (5)
  - Feeling abnormal [Unknown]
  - Stress [Unknown]
  - Sleep disorder due to a general medical condition [Unknown]
  - Gastrooesophageal reflux disease [Unknown]
  - Intentional drug misuse [Unknown]
